FAERS Safety Report 4973393-4 (Version None)
Quarter: 2006Q2

REPORT INFORMATION
  Report Type: 
  Country: None (occurrence: None)
  Receive Date: 20060414
  Receipt Date: 20060104
  Transmission Date: 20061013
  Serious: Yes (Hospitalization)
  Sender: FDA-Public Use
  Company Number: US-MERCK-0601USA00542

PATIENT
  Age: 47 Year
  Sex: Male
  Weight: 109 kg

DRUGS (6)
  1. VIOXX [Suspect]
     Indication: SHOULDER PAIN
     Route: 048
     Dates: start: 20000216, end: 20021214
  2. PRIMIDONE [Concomitant]
     Route: 065
  3. INDERAL [Concomitant]
     Route: 065
  4. PREVACID [Concomitant]
     Route: 065
  5. LIPITOR [Concomitant]
     Route: 065
  6. LEXAPRO [Concomitant]
     Route: 065

REACTIONS (13)
  - ANXIETY [None]
  - APPENDICITIS [None]
  - BACTERIAL INFECTION [None]
  - BRADYCARDIA [None]
  - CONVULSION [None]
  - COORDINATION ABNORMAL [None]
  - DEEP VEIN THROMBOSIS [None]
  - DYSPNOEA [None]
  - FAECES DISCOLOURED [None]
  - HAEMATOCHEZIA [None]
  - JOINT DISLOCATION [None]
  - PULMONARY EMBOLISM [None]
  - SLEEP APNOEA SYNDROME [None]
